FAERS Safety Report 23218831 (Version 2)
Quarter: 2023Q4

REPORT INFORMATION
  Report Type: Spontaneous
  Country: ZA (occurrence: ZA)
  Receive Date: 20231122
  Receipt Date: 20231122
  Transmission Date: 20240110
  Serious: Yes (Other)
  Sender: FDA-Public Use
  Company Number: ZA-GUERBETG-20210004

PATIENT
  Age: 31 Year
  Sex: Male

DRUGS (1)
  1. OPTIRAY 350 [Suspect]
     Active Substance: IOVERSOL
     Indication: Computerised tomogram thorax
     Route: 042
     Dates: start: 20210824, end: 20210824

REACTIONS (3)
  - Chest pain [Recovered/Resolved]
  - Air embolism [Recovered/Resolved]
  - Hypersensitivity [Recovered/Resolved]

NARRATIVE: CASE EVENT DATE: 20210824
